FAERS Safety Report 13498885 (Version 1)
Quarter: 2017Q2

REPORT INFORMATION
  Report Type: Spontaneous
  Country: US (occurrence: US)
  Receive Date: 20170430
  Receipt Date: 20170430
  Transmission Date: 20170830
  Serious: Yes (Disabling, Other)
  Sender: FDA-Public Use
  Company Number: None

PATIENT
  Age: 29 Year
  Sex: Female
  Weight: 58.95 kg

DRUGS (1)
  1. CIPROFLOXACIN. [Suspect]
     Active Substance: CIPROFLOXACIN
     Indication: URINARY TRACT INFECTION
     Dosage: ?          QUANTITY:3 TABLET(S);?
     Route: 048
     Dates: start: 20170315, end: 20170318

REACTIONS (9)
  - Headache [None]
  - Abdominal pain [None]
  - Fatigue [None]
  - Decreased appetite [None]
  - Vision blurred [None]
  - Tendon disorder [None]
  - Loss of personal independence in daily activities [None]
  - Pain [None]
  - Arthropathy [None]

NARRATIVE: CASE EVENT DATE: 20170428
